FAERS Safety Report 16391918 (Version 1)
Quarter: 2019Q2

REPORT INFORMATION
  Report Type: Spontaneous
  Country: US (occurrence: US)
  Receive Date: 20190605
  Receipt Date: 20190605
  Transmission Date: 20190711
  Serious: Yes (Other)
  Sender: FDA-Public Use
  Company Number: US-ROCHE-2250700

PATIENT
  Sex: Female
  Weight: 51.76 kg

DRUGS (2)
  1. OCREVUS [Suspect]
     Active Substance: OCRELIZUMAB
     Dosage: ON 21/NOV/2018, SHE RECEIVED OCRELIZUMAB 600 MG.
     Route: 042
     Dates: start: 20180521
  2. OCREVUS [Suspect]
     Active Substance: OCRELIZUMAB
     Indication: RELAPSING-REMITTING MULTIPLE SCLEROSIS
     Dosage: ON 27/NOV/2017, SHE RECEIVED 300 MG OCRELIZUMAB.
     Route: 042
     Dates: start: 20171109

REACTIONS (1)
  - Pregnancy [Unknown]
